FAERS Safety Report 14709829 (Version 1)
Quarter: 2018Q2

REPORT INFORMATION
  Report Type: Spontaneous
  Country: US (occurrence: US)
  Receive Date: 20180403
  Receipt Date: 20180403
  Transmission Date: 20180711
  Serious: Yes (Death)
  Sender: FDA-Public Use
  Company Number: US-SEBELA IRELAND LIMITED-2018SEB00077

PATIENT
  Age: 60 Year
  Sex: Female

DRUGS (3)
  1. CHEMOTHERAPY [Concomitant]
     Active Substance: UNSPECIFIED INGREDIENT
     Route: 065
  2. ANTIBIOTICS [Concomitant]
     Active Substance: UNSPECIFIED INGREDIENT
     Route: 065
  3. AZATHIOPRINE. [Suspect]
     Active Substance: AZATHIOPRINE
     Indication: ANTISYNTHETASE SYNDROME
     Route: 065

REACTIONS (6)
  - B-cell lymphoma [Fatal]
  - Angiocentric lymphoma [Fatal]
  - Epstein-Barr virus infection [Fatal]
  - Pancytopenia [Fatal]
  - Klebsiella sepsis [Fatal]
  - Acute kidney injury [Fatal]
